FAERS Safety Report 4656796-7 (Version None)
Quarter: 2005Q2

REPORT INFORMATION
  Report Type: 
  Country: None (occurrence: None)
  Receive Date: 20050506
  Receipt Date: 20050427
  Transmission Date: 20051028
  Serious: Yes (Disabling)
  Sender: FDA-Public Use
  Company Number: 2005AP02071

PATIENT
  Age: 62 Year
  Sex: Female
  Weight: 60 kg

DRUGS (11)
  1. OMEPRAL [Suspect]
     Indication: REFLUX OESOPHAGITIS
     Dosage: 20 MG DAILY PO
     Route: 048
     Dates: start: 20030219, end: 20030304
  2. GATIFLO [Suspect]
     Indication: CYSTITIS
     Dosage: 400 MG DAILY PO
     Route: 048
     Dates: start: 20030224, end: 20030304
  3. NORVASC [Concomitant]
  4. DEPAS [Concomitant]
  5. HOKUNALIN [Concomitant]
  6. FLUTIDE [Concomitant]
  7. CEREGASRON [Concomitant]
  8. GASMOTIN [Concomitant]
  9. SYLLABLE [Concomitant]
  10. TAKEPRON [Concomitant]
  11. GANATON [Concomitant]

REACTIONS (3)
  - CYSTITIS [None]
  - HAEMODIALYSIS [None]
  - RENAL FAILURE ACUTE [None]
